FAERS Safety Report 8334278-9 (Version None)
Quarter: 2012Q2

REPORT INFORMATION
  Report Type: 
  Country: None (occurrence: None)
  Receive Date: 20120503
  Receipt Date: 20120502
  Transmission Date: 20120825
  Serious: Yes (Life-Threatening, Hospitalization, Other)
  Sender: FDA-Public Use
  Company Number: GB-PFIZER INC-2012073562

PATIENT
  Age: 71 Year
  Sex: Male
  Weight: 89 kg

DRUGS (5)
  1. VARENICLINE TARTRATE [Suspect]
     Indication: SMOKING CESSATION THERAPY
     Dosage: 500 UG, 1X/DAY
     Route: 048
     Dates: start: 20111124, end: 20111130
  2. SPIRIVA [Suspect]
     Indication: BRONCHITIS
     Dosage: 18 UG, 1X/DAY
     Route: 055
     Dates: start: 20111124, end: 20111124
  3. PREDNISOLONE [Concomitant]
     Indication: BRONCHITIS
     Dosage: 30 MG, 1X/DAY
     Route: 048
     Dates: start: 20111124, end: 20111208
  4. CLARITHROMYCIN [Concomitant]
     Indication: BRONCHITIS
     Dosage: 250 MG, 2X/DAY
     Route: 048
     Dates: start: 20111124, end: 20111128
  5. SPIRIVA [Suspect]
     Indication: DYSPNOEA

REACTIONS (8)
  - CARDIAC FAILURE ACUTE [None]
  - ATRIAL FIBRILLATION [None]
  - LOWER RESPIRATORY TRACT INFECTION [None]
  - ORTHOPNOEA [None]
  - PALPITATIONS [None]
  - DIZZINESS [None]
  - AORTIC STENOSIS [None]
  - DYSPNOEA [None]
